FAERS Safety Report 9484086 (Version 1)
Quarter: 2013Q3

REPORT INFORMATION
  Report Type: Spontaneous
  Country: US (occurrence: US)
  Receive Date: 20130828
  Receipt Date: 20130828
  Transmission Date: 20140515
  Serious: Yes (Other)
  Sender: FDA-Public Use
  Company Number: US-PURDUE-USA-2013-0105700

PATIENT
  Age: 72 Year
  Sex: Male

DRUGS (1)
  1. OXYCONTIN (NDA 22-272) [Suspect]
     Indication: PAIN

REACTIONS (4)
  - Suicidal ideation [Unknown]
  - Drug effect decreased [Unknown]
  - Intentional drug misuse [Unknown]
  - Drug tolerance [Unknown]
